FAERS Safety Report 10061586 (Version 5)
Quarter: 2016Q2

REPORT INFORMATION
  Report Type: Report from Study
  Country: ES (occurrence: ES)
  Receive Date: 20140407
  Receipt Date: 20160510
  Transmission Date: 20160815
  Serious: Yes (Other)
  Sender: FDA-Public Use
  Company Number: ES-AMGEN-ESPCT2014023585

PATIENT
  Age: 55 Year
  Sex: Male
  Weight: 86 kg

DRUGS (14)
  1. BORTEZOMIB [Concomitant]
     Active Substance: BORTEZOMIB
     Dosage: UNK
     Dates: start: 20121219
  2. FERROUS SULFATE. [Concomitant]
     Active Substance: FERROUS SULFATE
     Dosage: 1 UNK, UNK
     Route: 048
     Dates: start: 20130301, end: 20160121
  3. DENOSUMAB [Suspect]
     Active Substance: DENOSUMAB
     Indication: PLASMA CELL MYELOMA
     Dosage: 120 MG, UNK
     Route: 065
     Dates: start: 20130104, end: 20140228
  4. SIMVASTATINA [Concomitant]
     Active Substance: SIMVASTATIN
     Dosage: 20 MG/KG, UNK
     Route: 048
     Dates: start: 20130402, end: 20160121
  5. ALOPURINOL [Concomitant]
     Active Substance: ALLOPURINOL
     Dosage: 300 MG, UNK
     Route: 048
     Dates: start: 20130402, end: 20160121
  6. CLEXANE [Concomitant]
     Active Substance: ENOXAPARIN SODIUM
     Dosage: 60 MG, UNK
     Route: 058
     Dates: start: 20130129, end: 20160121
  7. DEXAMETHASONE. [Concomitant]
     Active Substance: DEXAMETHASONE
     Dosage: UNK
     Dates: start: 20121219
  8. DIAZEPAM. [Concomitant]
     Active Substance: DIAZEPAM
     Dosage: 7.5 MG, UNK
     Route: 048
     Dates: start: 20130518, end: 20160121
  9. SEPTRIN [Concomitant]
     Active Substance: SULFAMETHOXAZOLE\TRIMETHOPRIM
     Dosage: 2 UNK, UNK
     Route: 048
     Dates: start: 20130801, end: 20160121
  10. THALIDOMIDE [Concomitant]
     Active Substance: THALIDOMIDE
     Dosage: UNK
     Dates: start: 201301
  11. FUROSEMIDE. [Concomitant]
     Active Substance: FUROSEMIDE
     Dosage: 40 MG, UNK
     Route: 048
     Dates: start: 20130129, end: 20160121
  12. ACICLOVIR [Concomitant]
     Active Substance: ACYCLOVIR
     Dosage: 400 MG, UNK
     Route: 048
     Dates: start: 20130118, end: 20160121
  13. CALCIUM + VITAMIN D [Concomitant]
     Active Substance: CALCIUM\VITAMIN D
     Dosage: 1 UNK, UNK
     Route: 048
     Dates: start: 20130104, end: 20160121
  14. OMEPRAZOL [Concomitant]
     Active Substance: OMEPRAZOLE
     Dosage: 20 MG, UNK
     Route: 048
     Dates: start: 20130311, end: 20160121

REACTIONS (1)
  - Osteonecrosis of jaw [Recovered/Resolved]

NARRATIVE: CASE EVENT DATE: 20140328
